FAERS Safety Report 9999009 (Version 1)
Quarter: 2014Q1

REPORT INFORMATION
  Report Type: Spontaneous
  Country: US (occurrence: US)
  Receive Date: 20140312
  Receipt Date: 20140312
  Transmission Date: 20141002
  Serious: No
  Sender: FDA-Public Use
  Company Number: US-SHIRE-US201400381

PATIENT
  Sex: 0

DRUGS (3)
  1. LIALDA [Suspect]
     Indication: IRRITABLE BOWEL SYNDROME
     Dosage: 1.2 G, 1X/DAY:QD
     Route: 048
     Dates: start: 201401
  2. LIALDA [Suspect]
     Indication: BOWEL MOVEMENT IRREGULARITY
  3. CHLORDIAZEPOXIDE HCL AND CLIDINIUM BROMIDE [Concomitant]
     Indication: ANXIETY
     Dosage: 2.5 MG, 1X/DAY:QD
     Route: 048
     Dates: start: 201308

REACTIONS (2)
  - Coeliac disease [Not Recovered/Not Resolved]
  - Off label use [Not Recovered/Not Resolved]
